FAERS Safety Report 9758087 (Version 1)
Quarter: 2013Q4

REPORT INFORMATION
  Report Type: Spontaneous
  Country: GB (occurrence: GB)
  Receive Date: 20131216
  Receipt Date: 20131216
  Transmission Date: 20140711
  Serious: Yes (Disabling)
  Sender: FDA-Public Use
  Company Number: GB-JNJFOC-20131205441

PATIENT
  Age: 62 Year
  Sex: Female
  Weight: 102.1 kg

DRUGS (15)
  1. XARELTO [Suspect]
     Indication: EMBOLISM VENOUS
     Route: 048
     Dates: start: 20130814, end: 20130903
  2. XARELTO [Suspect]
     Indication: DEEP VEIN THROMBOSIS
     Route: 048
     Dates: start: 20130814, end: 20130903
  3. PARACETAMOL [Concomitant]
     Route: 065
  4. BETAHISTINE [Concomitant]
     Route: 065
  5. CARBIMAZOLE [Concomitant]
     Route: 065
  6. FERROUS SULPHATE [Concomitant]
     Route: 065
  7. TELFAST [Concomitant]
     Route: 065
  8. LISINOPRIL [Concomitant]
     Route: 065
  9. MEBEVERINE [Concomitant]
     Route: 065
  10. METFORMIN [Concomitant]
     Route: 065
  11. METOCLOPRAMIDE [Concomitant]
     Route: 065
  12. SOLIFENACIN [Concomitant]
     Route: 065
  13. AMLODIPINE [Concomitant]
     Route: 065
  14. AMITRIPTYLINE [Concomitant]
     Route: 065
  15. LANSOPRAZOLE [Concomitant]
     Route: 065

REACTIONS (3)
  - Frequent bowel movements [Recovered/Resolved]
  - Diarrhoea [Recovered/Resolved]
  - Defaecation urgency [Recovered/Resolved]
